FAERS Safety Report 4488403-0 (Version None)
Quarter: 2004Q4

REPORT INFORMATION
  Report Type: 
  Country: None (occurrence: None)
  Receive Date: 20041026
  Receipt Date: 20041012
  Transmission Date: 20050328
  Serious: Yes (Hospitalization)
  Sender: FDA-Public Use
  Company Number: 200404

PATIENT
  Age: 52 Year
  Sex: Female
  Weight: 72.5755 kg

DRUGS (4)
  1. AVONEX [Suspect]
     Indication: MULTIPLE SCLEROSIS
     Dosage: 30 MCG QW IM
     Route: 030
     Dates: start: 19981001
  2. LISINOPRIL [Concomitant]
  3. HYDROCHLOROTHIAZIDE [Concomitant]
  4. MULTI-VITAMINS [Concomitant]

REACTIONS (14)
  - BACK PAIN [None]
  - BREAST NEOPLASM [None]
  - CATHETER SITE PAIN [None]
  - DECUBITUS ULCER [None]
  - DIABETES MELLITUS [None]
  - FALL [None]
  - LEG AMPUTATION [None]
  - MOVEMENT DISORDER [None]
  - PERIPHERAL VASCULAR DISORDER [None]
  - POST PROCEDURAL DISCHARGE [None]
  - SACRAL PAIN [None]
  - SPINAL FUSION SURGERY [None]
  - URINARY TRACT DISORDER [None]
  - VEIN DISORDER [None]
